FAERS Safety Report 4627539-8 (Version None)
Quarter: 2005Q2

REPORT INFORMATION
  Report Type: 
  Country: None (occurrence: None)
  Receive Date: 20050405
  Receipt Date: 20050216
  Transmission Date: 20051028
  Serious: Yes (Hospitalization, Other)
  Sender: FDA-Public Use
  Company Number: T05-USA-00585-01

PATIENT
  Age: 37 Year
  Sex: Male
  Weight: 94.3482 kg

DRUGS (5)
  1. MEMANTINE HCL [Suspect]
     Indication: SCHIZOPHRENIA
     Dosage: 4 TABLET QHS PO
     Route: 048
     Dates: start: 20050105, end: 20050207
  2. LITHIUM CARBONATE [Concomitant]
  3. ZYPREXA [Concomitant]
  4. VITAMIN B6 [Concomitant]
  5. CLARITIN [Concomitant]

REACTIONS (15)
  - AGITATION [None]
  - ANXIETY [None]
  - BLOOD BILIRUBIN INCREASED [None]
  - BLOOD GLUCOSE INCREASED [None]
  - BLOOD OSMOLARITY DECREASED [None]
  - DRUG LEVEL DECREASED [None]
  - HYPOCHLORAEMIA [None]
  - HYPOKALAEMIA [None]
  - INAPPROPRIATE ANTIDIURETIC HORMONE SECRETION [None]
  - LEUKOCYTOSIS [None]
  - LIVER FUNCTION TEST ABNORMAL [None]
  - MENTAL STATUS CHANGES [None]
  - NASAL CONGESTION [None]
  - RASH [None]
  - TREMOR [None]
